FAERS Safety Report 5862452-X (Version None)
Quarter: 2008Q3

REPORT INFORMATION
  Report Type: 
  Country: None (occurrence: None)
  Receive Date: 20080827
  Receipt Date: 20080827
  Transmission Date: 20090109
  Serious: Yes (Hospitalization)
  Sender: FDA-Public Use
  Company Number: None

PATIENT

DRUGS (2)
  1. SIMVASTATIN [Suspect]
     Indication: HYPERLIPIDAEMIA
     Dosage: 80 MG AT BEDTIME PO
     Route: 048
     Dates: start: 20011203, end: 20080711
  2. GEMFIBROZIL [Suspect]
     Dosage: 600 MG EVERYDAY PO
     Route: 048
     Dates: start: 20031029, end: 20080711

REACTIONS (16)
  - ADJUSTMENT DISORDER [None]
  - ANAEMIA [None]
  - ANXIETY [None]
  - COGNITIVE DISORDER [None]
  - CONDITION AGGRAVATED [None]
  - DEPRESSION [None]
  - DIPLOPIA [None]
  - DYSLIPIDAEMIA [None]
  - GASTROOESOPHAGEAL REFLUX DISEASE [None]
  - HEADACHE [None]
  - RENAL DISORDER [None]
  - RENAL FAILURE ACUTE [None]
  - RHABDOMYOLYSIS [None]
  - SPEECH DISORDER [None]
  - SUICIDE ATTEMPT [None]
  - URINARY TRACT DISORDER [None]
